FAERS Safety Report 19280893 (Version 17)
Quarter: 2022Q4

REPORT INFORMATION
  Report Type: Report from Study
  Country: CA (occurrence: CA)
  Receive Date: 20210520
  Receipt Date: 20221202
  Transmission Date: 20230113
  Serious: Yes (Life-Threatening, Other)
  Sender: FDA-Public Use
  Company Number: CA-BRISTOL-MYERS SQUIBB COMPANY-BMS-2021-042668

PATIENT
  Age: 61 Year
  Sex: Female
  Weight: 65.20 kg

DRUGS (4)
  1. ORENCIA [Suspect]
     Active Substance: ABATACEPT
     Indication: Rheumatoid arthritis
     Dosage: ABZ8679- EXPIRY DATE 31-MAY-2024, 1885043- EXPIRY DATE: 30-SEP-2024.
     Route: 042
     Dates: start: 20111102
  2. ORENCIA [Suspect]
     Active Substance: ABATACEPT
     Dosage: EXP: 31-MAY-2024
     Route: 042
     Dates: start: 20210322
  3. ORENCIA [Suspect]
     Active Substance: ABATACEPT
     Route: 042
     Dates: start: 20220831
  4. ORENCIA [Suspect]
     Active Substance: ABATACEPT
     Route: 042
     Dates: start: 20221026

REACTIONS (16)
  - Paraesthesia [Unknown]
  - Wound [Recovering/Resolving]
  - Musculoskeletal discomfort [Unknown]
  - Arthropathy [Unknown]
  - Arthralgia [Not Recovered/Not Resolved]
  - Gait disturbance [Not Recovered/Not Resolved]
  - Inappropriate schedule of product administration [Recovered/Resolved]
  - Oxygen saturation decreased [Not Recovered/Not Resolved]
  - Psoriasis [Not Recovered/Not Resolved]
  - Blood pressure systolic decreased [Not Recovered/Not Resolved]
  - General physical health deterioration [Unknown]
  - Prescribed overdose [Unknown]
  - Back pain [Unknown]
  - Burning sensation [Not Recovered/Not Resolved]
  - Fall [Recovering/Resolving]
  - Chest pain [Recovering/Resolving]

NARRATIVE: CASE EVENT DATE: 20220101
